FAERS Safety Report 12856872 (Version 1)
Quarter: 2016Q4

REPORT INFORMATION
  Report Type: Spontaneous
  Country: US (occurrence: US)
  Receive Date: 20161018
  Receipt Date: 20161018
  Transmission Date: 20170207
  Serious: Yes (Disabling)
  Sender: FDA-Public Use
  Company Number: None

PATIENT
  Age: 65 Year
  Sex: Male
  Weight: 74.25 kg

DRUGS (2)
  1. CHLORDIAZEPOXIDE - CLINDIUM [Concomitant]
  2. HYOSCYAMINE SULF 0.125 MG TAB [Suspect]
     Active Substance: HYOSCYAMINE SULFATE
     Indication: NERVOUS SYSTEM DISORDER
     Dosage: QUANTITY:9 TABLET(S);OTHER FREQUENCY:1/4 TAB 2X A DAY; ORAL?
     Route: 048
     Dates: start: 20160713, end: 20160801

REACTIONS (8)
  - Dizziness [None]
  - Libido decreased [None]
  - Pollakiuria [None]
  - Dyspnoea [None]
  - Insomnia [None]
  - Muscle spasms [None]
  - Product use issue [None]
  - Dry mouth [None]

NARRATIVE: CASE EVENT DATE: 20160714
